FAERS Safety Report 9701378 (Version 1)
Quarter: 2013Q4

REPORT INFORMATION
  Report Type: Spontaneous
  Country: US (occurrence: US)
  Receive Date: 20131121
  Receipt Date: 20131121
  Transmission Date: 20140711
  Serious: No
  Sender: FDA-Public Use
  Company Number: US-GILEAD-2008-0016813

PATIENT
  Age: 63 Year
  Sex: Female
  Weight: 92.78 kg

DRUGS (8)
  1. LETAIRIS [Suspect]
     Indication: PULMONARY HYPERTENSION
     Route: 048
     Dates: start: 200708
  2. K-DUR [Concomitant]
     Route: 048
  3. LODINE [Concomitant]
     Route: 048
  4. EFFEXOR XR [Concomitant]
     Route: 048
  5. NEURONTIN [Concomitant]
     Route: 048
  6. OXYCONTIN [Concomitant]
     Route: 048
  7. ZESTORETIC [Concomitant]
     Route: 048
  8. SYNTHROID [Concomitant]
     Route: 048

REACTIONS (3)
  - Rash [Unknown]
  - Local swelling [Unknown]
  - Nasal oedema [Unknown]
